FAERS Safety Report 5305700-7 (Version None)
Quarter: 2007Q2

REPORT INFORMATION
  Report Type: 
  Country: None (occurrence: None)
  Receive Date: 20070423
  Receipt Date: 20070423
  Transmission Date: 20071010
  Serious: Yes (Other)
  Sender: FDA-Public Use
  Company Number: None

PATIENT
  Age: 58 Year
  Sex: Male
  Weight: 99.3377 kg

DRUGS (20)
  1. SIMVASTATIN 20MG/DAILY [Suspect]
  2. FUROSEMIDE [Suspect]
  3. LISINOPRIL [Suspect]
  4. FENOFIBRATE [Suspect]
  5. GLIMEPIRIDE [Concomitant]
  6. GLARGINE INS [Concomitant]
  7. ASPARTINS [Concomitant]
  8. METOPROLOL SUCCINATE [Concomitant]
  9. FENOFIBRATE [Concomitant]
  10. MIRTAZAPINE [Concomitant]
  11. SERTRALINE [Concomitant]
  12. TRAZODONE HCL [Concomitant]
  13. FELODIPINE [Concomitant]
  14. ROSIGLITAZONE [Concomitant]
  15. ERGOCALCIFEROL [Concomitant]
  16. LISINOPRIL [Concomitant]
  17. SIMVASTATIN [Concomitant]
  18. FUROSEMIDE [Concomitant]
  19. CALCIUM/VIT D [Concomitant]
  20. GABAPENTIN [Concomitant]

REACTIONS (6)
  - BLOOD CREATINE PHOSPHOKINASE INCREASED [None]
  - BLOOD CREATININE INCREASED [None]
  - BLOOD GLUCOSE INCREASED [None]
  - BLOOD POTASSIUM INCREASED [None]
  - HYPOGLYCAEMIA [None]
  - RHEUMATOID ARTHRITIS [None]
